FAERS Safety Report 16894133 (Version 1)
Quarter: 2019Q4

REPORT INFORMATION
  Report Type: Spontaneous
  Country: US (occurrence: US)
  Receive Date: 20191008
  Receipt Date: 20191008
  Transmission Date: 20200122
  Serious: Yes (Hospitalization)
  Sender: FDA-Public Use
  Company Number: US-PERRIGO-19US011762

PATIENT
  Age: 3 Year
  Sex: Female
  Weight: 13.5 kg

DRUGS (7)
  1. HYDROMORPHONE HYDROCHLORIDE. [Suspect]
     Active Substance: HYDROMORPHONE HYDROCHLORIDE
     Indication: ACCIDENTAL EXPOSURE TO PRODUCT BY CHILD
     Dosage: UNKNOWN, SINGLE
     Route: 048
  2. DIHYDROCODEINE [Suspect]
     Active Substance: DIHYDROCODEINE
     Indication: ACCIDENTAL EXPOSURE TO PRODUCT BY CHILD
     Dosage: UNKNOWN, SINGLE
     Route: 048
  3. FENTANYL. [Suspect]
     Active Substance: FENTANYL
     Indication: SEDATION
     Dosage: 100 MCG, DURING AIRLIFT
     Route: 042
  4. FENTANYL. [Suspect]
     Active Substance: FENTANYL
     Indication: ANALGESIC THERAPY
     Dosage: 0.5 MCG/KG, 7 MCG, BOLUSES AT 1307 ON DAY 0
     Route: 042
  5. HYDROCODONE [Suspect]
     Active Substance: HYDROCODONE
     Indication: ACCIDENTAL EXPOSURE TO PRODUCT BY CHILD
     Dosage: UNKNOWN, SINGLE
     Route: 048
  6. FENTANYL. [Suspect]
     Active Substance: FENTANYL
     Dosage: 1 MCG/KG, 15 MCG, BOLUSES ON DAY 1 AT 1110
     Route: 042
  7. FENTANYL. [Suspect]
     Active Substance: FENTANYL
     Dosage: 2 MCG/KG/H PRN INFUSION, STARTED DAY 1 AT 0030
     Route: 042

REACTIONS (2)
  - Brain oedema [Recovered/Resolved with Sequelae]
  - Accidental overdose [Recovered/Resolved with Sequelae]
